FAERS Safety Report 6318945-4 (Version None)
Quarter: 2009Q3

REPORT INFORMATION
  Report Type: 
  Country: None (occurrence: None)
  Receive Date: 20090821
  Receipt Date: 20090121
  Transmission Date: 20100115
  Serious: No
  Sender: FDA-Public Use
  Company Number: US-ABBOTT-09P-163-0499126-00

PATIENT
  Sex: Male
  Weight: 65.83 kg

DRUGS (10)
  1. NIASPAN [Suspect]
     Indication: BLOOD CHOLESTEROL INCREASED
     Route: 048
     Dates: start: 20090118
  2. GLIPIZIDE [Concomitant]
     Indication: DIABETES MELLITUS
     Route: 048
  3. LIPITOR [Concomitant]
     Indication: BLOOD CHOLESTEROL INCREASED
     Route: 048
  4. COUMADIN [Concomitant]
     Indication: DRUG USE FOR UNKNOWN INDICATION
     Route: 048
  5. ASPIRIN [Concomitant]
     Indication: DRUG USE FOR UNKNOWN INDICATION
     Route: 048
  6. COREG [Concomitant]
     Indication: DRUG USE FOR UNKNOWN INDICATION
     Route: 048
  7. COZAAR [Concomitant]
     Indication: DRUG USE FOR UNKNOWN INDICATION
     Route: 048
  8. FLOMAX [Concomitant]
     Indication: DRUG USE FOR UNKNOWN INDICATION
     Route: 048
  9. CITALOPRAM HYDROBROMIDE [Concomitant]
     Indication: DRUG USE FOR UNKNOWN INDICATION
     Route: 048
  10. ACIPHEX [Concomitant]
     Indication: DRUG USE FOR UNKNOWN INDICATION
     Route: 048

REACTIONS (1)
  - BLOOD GLUCOSE INCREASED [None]
